FAERS Safety Report 16911534 (Version 1)
Quarter: 2019Q4

REPORT INFORMATION
  Report Type: Spontaneous
  Country: US (occurrence: US)
  Receive Date: 20191013
  Receipt Date: 20191013
  Transmission Date: 20200122
  Serious: No
  Sender: FDA-Public Use
  Company Number: US-C B FLEET CO INC-201812-US-002957

PATIENT
  Sex: Female

DRUGS (2)
  1. MONISTAT 3 COMBINATION PACK [Suspect]
     Active Substance: MICONAZOLE NITRATE
     Indication: FUNGAL INFECTION
     Dosage: I HAVE DONE 1 FROM THIS BOX. CONSUMER ONLY USED 1 APPLICATION
     Route: 067
  2. MONISTAT 3 COMBINATION PACK [Suspect]
     Active Substance: MICONAZOLE NITRATE
     Indication: FUNGAL INFECTION
     Dosage: I USED THAT ONE FOR 3 NIGHTS.
     Route: 067
     Dates: start: 20181202, end: 20181204

REACTIONS (6)
  - Inappropriate schedule of product administration [None]
  - Vulvovaginal burning sensation [Not Recovered/Not Resolved]
  - Abdominal pain lower [Not Recovered/Not Resolved]
  - Vaginal haemorrhage [Not Recovered/Not Resolved]
  - Vulvovaginal discomfort [Not Recovered/Not Resolved]
  - Back pain [Not Recovered/Not Resolved]
